FAERS Safety Report 12711498 (Version 2)
Quarter: 2016Q4

REPORT INFORMATION
  Report Type: Spontaneous
  Country: US (occurrence: US)
  Receive Date: 20160902
  Receipt Date: 20161007
  Transmission Date: 20170207
  Serious: Yes (Hospitalization, Other)
  Sender: FDA-Public Use
  Company Number: US-AMGEN-USASP2016113703

PATIENT
  Age: 55 Year
  Sex: Female

DRUGS (3)
  1. PROLIA [Suspect]
     Active Substance: DENOSUMAB
     Indication: OSTEOPOROSIS POSTMENOPAUSAL
     Dosage: 60 MG, Q6MO
     Route: 065
     Dates: start: 2015
  2. CALCIUM [Concomitant]
     Active Substance: CALCIUM
     Dosage: UNK
  3. VITAMIN D [Concomitant]
     Active Substance: CHOLECALCIFEROL

REACTIONS (10)
  - Pancreatitis [Unknown]
  - Pancreatic enzymes increased [Not Recovered/Not Resolved]
  - Laboratory test abnormal [Unknown]
  - Unevaluable event [Unknown]
  - Weight decreased [Unknown]
  - Hepatic enzyme increased [Not Recovered/Not Resolved]
  - Gallbladder non-functioning [Unknown]
  - Back disorder [Unknown]
  - Scar [Unknown]
  - Nausea [Unknown]

NARRATIVE: CASE EVENT DATE: 2016
